FAERS Safety Report 8362707-3 (Version None)
Quarter: 2012Q2

REPORT INFORMATION
  Report Type: 
  Country: None (occurrence: None)
  Receive Date: 20120516
  Receipt Date: 20120508
  Transmission Date: 20120825
  Serious: Yes (Other)
  Sender: FDA-Public Use
  Company Number: US-US-EMD SERONO, INC.-7120691

PATIENT
  Sex: Female
  Weight: 91 kg

DRUGS (1)
  1. REBIF [Suspect]
     Indication: MULTIPLE SCLEROSIS
     Route: 058
     Dates: start: 20110718

REACTIONS (3)
  - MULTIPLE SCLEROSIS RELAPSE [None]
  - INJECTION SITE RASH [None]
  - CONTUSION [None]
